FAERS Safety Report 25097491 (Version 5)
Quarter: 2025Q2

REPORT INFORMATION
  Report Type: Spontaneous
  Country: US (occurrence: US)
  Receive Date: 20250320
  Receipt Date: 20250512
  Transmission Date: 20250716
  Serious: Yes (Other)
  Sender: SANOFI AVENTIS
  Company Number: US-SANOFI-02447909

PATIENT
  Sex: Male

DRUGS (1)
  1. LANTUS SOLOSTAR [Suspect]
     Active Substance: INSULIN GLARGINE
     Indication: Type 2 diabetes mellitus
     Dosage: 8-12 IU, QD, DEPENDING ON HIS BLOOD SUGAR LEVELS
     Route: 065

REACTIONS (5)
  - Cerebrovascular accident [Unknown]
  - Road traffic accident [Unknown]
  - Eye disorder [Unknown]
  - Blood glucose decreased [Unknown]
  - Off label use [Unknown]
